FAERS Safety Report 18323997 (Version 1)
Quarter: 2020Q3

REPORT INFORMATION
  Report Type: Report from Study
  Country: None (occurrence: US)
  Receive Date: 20200929
  Receipt Date: 20200929
  Transmission Date: 20201103
  Serious: Yes (Death)
  Sender: FDA-Public Use
  Company Number: US-ABBVIE-20K-163-3584426-00

PATIENT
  Age: 85 Year
  Sex: Female
  Weight: 47.22 kg

DRUGS (1)
  1. CREON [Suspect]
     Active Substance: PANCRELIPASE AMYLASE\PANCRELIPASE LIPASE\PANCRELIPASE PROTEASE
     Indication: PANCREATIC CARCINOMA STAGE IV
     Dosage: 1 CAPSULE PER MEAL
     Route: 048
     Dates: start: 201910

REACTIONS (3)
  - Pancreatic carcinoma stage IV [Fatal]
  - Diabetes mellitus [Not Recovered/Not Resolved]
  - Blood glucose fluctuation [Recovered/Resolved]

NARRATIVE: CASE EVENT DATE: 20191020
